FAERS Safety Report 7555399-4 (Version None)
Quarter: 2011Q2

REPORT INFORMATION
  Report Type: 
  Country: None (occurrence: None)
  Receive Date: 20110617
  Receipt Date: 20110608
  Transmission Date: 20111010
  Serious: Yes (Other)
  Sender: FDA-Public Use
  Company Number: US-ASTRAZENECA-2011SE35198

PATIENT
  Age: 25304 Day
  Sex: Male

DRUGS (4)
  1. OXYCODONE/ACETAMINOPHEN [Concomitant]
     Indication: PAIN
     Dosage: 7.5 / 500 MG EVERY SIX HOURS AS REQUIRED
     Route: 048
  2. LEVOTHYROXINE SODIUM [Concomitant]
     Indication: HYPOTHYROIDISM
     Route: 048
  3. IBUPROFEN [Concomitant]
     Indication: PAIN
     Dosage: 200 MG EVERY SIX HOURS AS REQUIRED
     Route: 048
  4. VANDETANIB [Suspect]
     Indication: THYROID CANCER
     Route: 048
     Dates: start: 20110428, end: 20110524

REACTIONS (2)
  - ELECTROCARDIOGRAM QT PROLONGED [None]
  - SINUS BRADYCARDIA [None]
